FAERS Safety Report 5448807-6 (Version None)
Quarter: 2007Q3

REPORT INFORMATION
  Report Type: 
  Country: None (occurrence: None)
  Receive Date: 20070911
  Receipt Date: 20070622
  Transmission Date: 20080115
  Serious: No
  Sender: FDA-Public Use
  Company Number: US-BRISTOL-MYERS SQUIBB COMPANY-13823018

PATIENT
  Age: 26 Year
  Sex: Male
  Weight: 118 kg

DRUGS (1)
  1. EMSAM [Suspect]
     Indication: DEPRESSION
     Route: 062
     Dates: start: 20070607, end: 20070622

REACTIONS (3)
  - DYSPHAGIA [None]
  - PAIN [None]
  - PHARYNGEAL OEDEMA [None]
